FAERS Safety Report 12526516 (Version 1)
Quarter: 2016Q3

REPORT INFORMATION
  Report Type: Spontaneous
  Country: US (occurrence: None)
  Receive Date: 20160701
  Receipt Date: 20160701
  Transmission Date: 20161109
  Serious: Yes (Other)
  Sender: FDA-Public Use
  Company Number: None

PATIENT
  Age: 57 Year
  Sex: Female

DRUGS (2)
  1. CIPRO [Suspect]
     Active Substance: CIPROFLOXACIN HYDROCHLORIDE
     Indication: URINARY TRACT INFECTION
     Route: 048
     Dates: start: 20160621, end: 20160629
  2. CHANTIX [Suspect]
     Active Substance: VARENICLINE TARTRATE
     Indication: TOBACCO USER
     Route: 048
     Dates: start: 20160520, end: 20160625

REACTIONS (4)
  - Ageusia [None]
  - Anosmia [None]
  - Therapy cessation [None]
  - Mouth ulceration [None]

NARRATIVE: CASE EVENT DATE: 20160625
